FAERS Safety Report 8170893-3 (Version None)
Quarter: 2012Q1

REPORT INFORMATION
  Report Type: 
  Country: None (occurrence: None)
  Receive Date: 20120228
  Receipt Date: 20120203
  Transmission Date: 20120608
  Serious: Yes (Other)
  Sender: FDA-Public Use
  Company Number: US-GILEAD-2012-0050014

PATIENT
  Age: 39 Year
  Sex: Female

DRUGS (3)
  1. ISENTRESS [Concomitant]
     Dosage: 800 MG, UNK
     Route: 048
  2. EMTRICITABINE AND TENOFOVIR DISOPROXIL FUMARATE [Suspect]
     Indication: HIV INFECTION
     Dosage: 1 DF, QD
     Route: 048
  3. KALETRA [Concomitant]
     Dosage: 5 UNK, UNK
     Route: 048

REACTIONS (1)
  - FOETAL DEATH [None]
